FAERS Safety Report 19326787 (Version 1)
Quarter: 2021Q2

REPORT INFORMATION
  Report Type: Spontaneous
  Country: ES (occurrence: ES)
  Receive Date: 20210528
  Receipt Date: 20210528
  Transmission Date: 20210717
  Serious: Yes (Death)
  Sender: FDA-Public Use
  Company Number: ES-PFIZER INC-2021594791

PATIENT
  Age: 68 Year
  Sex: Male

DRUGS (28)
  1. DALBAVANCIN. [Suspect]
     Active Substance: DALBAVANCIN
     Indication: PSEUDOMONAS INFECTION
  2. CEFTOLOZANE [Suspect]
     Active Substance: CEFTOLOZANE
     Indication: ENTEROCOCCAL INFECTION
  3. LINEZOLID. [Suspect]
     Active Substance: LINEZOLID
     Indication: PSEUDOMONAS INFECTION
     Dosage: UNK
  4. TAZOBACTAM [Suspect]
     Active Substance: TAZOBACTAM
     Indication: ENTEROCOCCAL INFECTION
  5. CASPOFUNGIN [Suspect]
     Active Substance: CASPOFUNGIN
     Indication: ANTIBIOTIC THERAPY
     Dosage: UNK
  6. COLISTIN [Suspect]
     Active Substance: COLISTIN
     Indication: ACINETOBACTER INFECTION
  7. CEFTOLOZANE [Suspect]
     Active Substance: CEFTOLOZANE
     Indication: PSEUDOMONAS INFECTION
     Dosage: UNK
  8. TAZOBACTAM [Suspect]
     Active Substance: TAZOBACTAM
     Indication: PSEUDOMONAS INFECTION
     Dosage: UNK
  9. LINEZOLID. [Suspect]
     Active Substance: LINEZOLID
     Indication: ACINETOBACTER INFECTION
  10. TIGECYCLINE. [Suspect]
     Active Substance: TIGECYCLINE
     Indication: PSEUDOMONAS INFECTION
     Dosage: UNK
  11. TIGECYCLINE. [Suspect]
     Active Substance: TIGECYCLINE
     Indication: ACINETOBACTER INFECTION
  12. CEFTRIAXONE. [Suspect]
     Active Substance: CEFTRIAXONE
     Indication: PSEUDOMONAS INFECTION
  13. DALBAVANCIN. [Suspect]
     Active Substance: DALBAVANCIN
     Indication: ENTEROCOCCAL INFECTION
     Dosage: 1,500 MG EVERY 15 DAYS (TWO DOSES)
  14. LINEZOLID. [Suspect]
     Active Substance: LINEZOLID
     Indication: ENTEROCOCCAL INFECTION
     Dosage: UNK
  15. MEROPENEM. [Suspect]
     Active Substance: MEROPENEM
     Indication: ANTIBIOTIC THERAPY
     Dosage: UNK
  16. CEFTRIAXONE. [Suspect]
     Active Substance: CEFTRIAXONE
     Indication: ENTEROCOCCAL INFECTION
     Dosage: UNK
  17. CIPROFLOXACIN. [Suspect]
     Active Substance: CIPROFLOXACIN
     Indication: ACINETOBACTER INFECTION
  18. TIGECYCLINE. [Suspect]
     Active Substance: TIGECYCLINE
     Indication: ENTEROCOCCAL INFECTION
     Dosage: UNK
  19. CIPROFLOXACIN. [Suspect]
     Active Substance: CIPROFLOXACIN
     Indication: ENTEROCOCCAL INFECTION
  20. GENTAMICIN. [Suspect]
     Active Substance: GENTAMICIN
     Indication: BACTERIAL INFECTION
     Dosage: UNK
  21. CIPROFLOXACIN. [Suspect]
     Active Substance: CIPROFLOXACIN
     Indication: PSEUDOMONAS INFECTION
     Dosage: UNK
  22. COLISTIN [Suspect]
     Active Substance: COLISTIN
     Indication: PSEUDOMONAS INFECTION
     Dosage: UNK
  23. CEFTOLOZANE [Suspect]
     Active Substance: CEFTOLOZANE
     Indication: ACINETOBACTER INFECTION
  24. TAZOBACTAM [Suspect]
     Active Substance: TAZOBACTAM
     Indication: ACINETOBACTER INFECTION
  25. MEROPENEM. [Suspect]
     Active Substance: MEROPENEM
     Indication: PSEUDOMONAS INFECTION
     Dosage: UNK
  26. TIGECYCLINE. [Suspect]
     Active Substance: TIGECYCLINE
     Indication: BACTERIAL INFECTION
  27. PIPERACILLIN/TAZOBACTAM [Suspect]
     Active Substance: PIPERACILLIN SODIUM\TAZOBACTAM SODIUM
     Indication: ANTIBIOTIC THERAPY
     Dosage: UNK
  28. COLISTIN [Suspect]
     Active Substance: COLISTIN
     Indication: ENTEROCOCCAL INFECTION

REACTIONS (1)
  - Drug ineffective [Fatal]
